FAERS Safety Report 4274673-0 (Version None)
Quarter: 2004Q1

REPORT INFORMATION
  Report Type: 
  Country: None (occurrence: None)
  Receive Date: 20040120
  Receipt Date: 20040120
  Transmission Date: 20041129
  Serious: Yes (Hospitalization)
  Sender: FDA-Public Use
  Company Number: None

PATIENT
  Sex: Female
  Weight: 77.7 kg

DRUGS (7)
  1. PACLITAXEL [Suspect]
     Indication: OVARIAN CANCER
     Dosage: IV Q 3 WEEKS
     Route: 042
     Dates: end: 20031219
  2. GEMCITABINE [Suspect]
  3. CARBOPLATIN [Suspect]
  4. DEXAMETHASONE [Concomitant]
  5. DIPHENHYDRAMINE HCL [Concomitant]
  6. FAMOTIDINE [Concomitant]
  7. ZOFRAN [Concomitant]

REACTIONS (8)
  - DYSPHAGIA [None]
  - HAEMATOCRIT DECREASED [None]
  - HAEMOGLOBIN DECREASED [None]
  - INFLUENZA [None]
  - LOCAL SWELLING [None]
  - NECK PAIN [None]
  - PHARYNGOLARYNGEAL PAIN [None]
  - UPPER RESPIRATORY TRACT INFECTION BACTERIAL [None]
